FAERS Safety Report 23989539 (Version 3)
Quarter: 2024Q2

REPORT INFORMATION
  Report Type: Spontaneous
  Country: US (occurrence: US)
  Receive Date: 20240619
  Receipt Date: 20240626
  Transmission Date: 20240716
  Serious: Yes (Death, Hospitalization, Other)
  Sender: FDA-Public Use
  Company Number: US-002147023-NVSC2024US127298

PATIENT
  Sex: Female

DRUGS (6)
  1. ZOMETA [Suspect]
     Active Substance: ZOLEDRONIC ACID
     Indication: Product used for unknown indication
     Dosage: UNK
     Route: 065
  2. IBRANCE [Suspect]
     Active Substance: PALBOCICLIB
     Indication: Product used for unknown indication
     Dosage: 100 MG, QD (Y FOR 21DAYS ON 7 DAYS OFF)
     Route: 048
     Dates: start: 20240217
  3. ATORVASTATIN [Concomitant]
     Active Substance: ATORVASTATIN
     Indication: Product used for unknown indication
     Dosage: UNK
     Route: 065
  4. GLIMEPIRIDE [Concomitant]
     Active Substance: GLIMEPIRIDE
     Indication: Product used for unknown indication
     Dosage: UNK
     Route: 065
  5. ANASTROZOLE [Concomitant]
     Active Substance: ANASTROZOLE
     Indication: Product used for unknown indication
     Dosage: UNK
     Route: 065
  6. GABAPENTIN [Concomitant]
     Active Substance: GABAPENTIN
     Indication: Product used for unknown indication
     Dosage: UNK
     Route: 065

REACTIONS (2)
  - Death [Fatal]
  - Myocardial infarction [Recovering/Resolving]
